FAERS Safety Report 15898471 (Version 1)
Quarter: 2019Q1

REPORT INFORMATION
  Report Type: Spontaneous
  Country: ES (occurrence: ES)
  Receive Date: 20190201
  Receipt Date: 20190201
  Transmission Date: 20190417
  Serious: Yes (Life-Threatening, Hospitalization, Disabling)
  Sender: FDA-Public Use
  Company Number: ES-ACCORD-105052

PATIENT
  Age: 49 Year
  Sex: Female

DRUGS (3)
  1. TRASTUZUMAB. [Suspect]
     Active Substance: TRASTUZUMAB
     Indication: BREAST CANCER
     Dosage: 440 MG EVERY 21 DAYS
     Route: 042
     Dates: start: 20180411, end: 20180411
  2. CARBOPLATIN ACCORD [Suspect]
     Active Substance: CARBOPLATIN
     Indication: BREAST CANCER
     Dosage: 630 MG EVERY 21 DAYS (ACCORDING TO AUC)
     Route: 042
     Dates: start: 20180411, end: 20180411
  3. DOCETAXEL ACCORD [Suspect]
     Active Substance: DOCETAXEL
     Indication: BREAST CANCER
     Dosage: 120 MG EVERY 21 DAYS
     Route: 042
     Dates: start: 20180411, end: 20180411

REACTIONS (2)
  - Off label use [Unknown]
  - Colitis [Recovering/Resolving]

NARRATIVE: CASE EVENT DATE: 20180415
